FAERS Safety Report 23044593 (Version 2)
Quarter: 2023Q4

REPORT INFORMATION
  Report Type: Spontaneous
  Country: CN (occurrence: CN)
  Receive Date: 20231009
  Receipt Date: 20231013
  Transmission Date: 20240110
  Serious: Yes (Hospitalization, Other)
  Sender: FDA-Public Use
  Company Number: CN-002147023-NVSC2023CN210958

PATIENT
  Age: 29 Year
  Sex: Female
  Weight: 43.5 kg

DRUGS (4)
  1. MYFORTIC [Suspect]
     Active Substance: MYCOPHENOLATE SODIUM
     Indication: Prophylaxis against transplant rejection
     Dosage: 540 MG, BID
     Route: 048
     Dates: start: 20230316
  2. MYFORTIC [Suspect]
     Active Substance: MYCOPHENOLATE SODIUM
     Dosage: 540 MG, BID
     Route: 048
     Dates: start: 20230322
  3. MYFORTIC [Suspect]
     Active Substance: MYCOPHENOLATE SODIUM
     Dosage: UNK UNK, BID (270MG IN THE MORNING AND 180MG IN THE EVENING)
     Route: 048
     Dates: start: 202305
  4. MIZORIBINE [Concomitant]
     Active Substance: MIZORIBINE
     Indication: Prophylaxis against transplant rejection
     Dosage: 100 MG, BID
     Route: 048
     Dates: start: 20230622, end: 20230908

REACTIONS (6)
  - Gastrointestinal haemorrhage [Recovering/Resolving]
  - Ileal ulcer [Recovering/Resolving]
  - Anal erosion [Unknown]
  - Vomiting [Recovering/Resolving]
  - Diarrhoea [Recovering/Resolving]
  - Occult blood positive [Unknown]

NARRATIVE: CASE EVENT DATE: 20230501
